FAERS Safety Report 4916555-4 (Version None)
Quarter: 2006Q1

REPORT INFORMATION
  Report Type: 
  Country: None (occurrence: None)
  Receive Date: 20060216
  Receipt Date: 20060216
  Transmission Date: 20060701
  Serious: Yes (Other)
  Sender: FDA-Public Use
  Company Number: None

PATIENT
  Sex: Female

DRUGS (3)
  1. OXYCODONE ER 80 MG PO TID [Suspect]
     Indication: FIBROMYALGIA
     Dosage: 80 MG PO TID TID PO
     Route: 048
     Dates: start: 20040528
  2. OXYCODONE ER 80 MG PO TID [Suspect]
     Indication: RHEUMATOID ARTHRITIS
     Dosage: 80 MG PO TID TID PO
     Route: 048
     Dates: start: 20040528
  3. DURAGESIC-100 [Concomitant]

REACTIONS (4)
  - DRUG EFFECT DECREASED [None]
  - NAUSEA [None]
  - PERFORMANCE STATUS DECREASED [None]
  - VOMITING [None]
